FAERS Safety Report 7749981 (Version 4)
Quarter: 2012Q4

REPORT INFORMATION
  Report Type: 
  Country: US (occurrence: US)
  Receive Date: 20110106
  Receipt Date: 20120912
  Transmission Date: 20130627
  Serious: Yes (Life-Threatening, Other)
  Sender: FDA-Public Use
  Company Number: US-BAYER-2011-000938

PATIENT
  Age: 43 Year
  Sex: Female
  Weight: 82 kg

DRUGS (5)
  1. YAZ [Suspect]
     Indication: PRODUCT USED FOR UNKNOWN INDICATION
     Dosage: UNK
     Dates: start: 20080602, end: 200902
  2. YASMIN [Suspect]
     Indication: PRODUCT USED FOR UNKNOWN INDICATION
     Dosage: UNK
     Dates: start: 200904, end: 200909
  3. OCELLA [Suspect]
     Indication: PRODUCT USED FOR UNKNOWN INDICATION
     Dosage: UNK
     Dates: start: 200909, end: 200909
  4. GUAIFENESIN/CODEINE [Concomitant]
     Dosage: UNK
     Dates: start: 20081020
  5. PREDNISONE [Concomitant]
     Dosage: 5 mg, UNK
     Dates: start: 20081020

REACTIONS (6)
  - Cerebrovascular accident [None]
  - Emotional distress [None]
  - Anxiety [None]
  - Depression [None]
  - Myocardial infarction [None]
  - Transient ischaemic attack [None]
